FAERS Safety Report 15945658 (Version 1)
Quarter: 2019Q1

REPORT INFORMATION
  Report Type: Spontaneous
  Country: GB (occurrence: GB)
  Receive Date: 20190211
  Receipt Date: 20190211
  Transmission Date: 20190417
  Serious: Yes (Other)
  Sender: FDA-Public Use
  Company Number: GB-ACCORD-105623

PATIENT
  Age: 33 Year
  Sex: Male
  Weight: 76.2 kg

DRUGS (1)
  1. LEVETIRACETAM ACCORD HEALTHCARE [Suspect]
     Active Substance: LEVETIRACETAM
     Indication: EPILEPSY
     Route: 048
     Dates: start: 20180507, end: 20180520

REACTIONS (3)
  - Product substitution issue [Unknown]
  - Epilepsy [Recovered/Resolved with Sequelae]
  - Drug ineffective [Unknown]
